FAERS Safety Report 24197855 (Version 2)
Quarter: 2024Q3

REPORT INFORMATION
  Report Type: Spontaneous
  Country: US (occurrence: US)
  Receive Date: 20240811
  Receipt Date: 20240828
  Transmission Date: 20241016
  Serious: Yes (Hospitalization, Other)
  Sender: BRISTOL MYERS SQUIBB
  Company Number: US-BRISTOL-MYERS SQUIBB COMPANY-2024-126424

PATIENT
  Age: 80 Year
  Sex: Female
  Weight: 38.1 kg

DRUGS (2)
  1. REVLIMID [Suspect]
     Active Substance: LENALIDOMIDE
     Indication: Plasma cell myeloma
     Dosage: CAPSULE DAILY FOR DAYS 1-14 EVERY 21 DAYS
     Route: 048
  2. BORTEZOMIB [Concomitant]
     Active Substance: BORTEZOMIB
     Indication: Product used for unknown indication
     Dosage: 1,4,8 AND 11, EVERY 28 DAYS.

REACTIONS (2)
  - COVID-19 pneumonia [Unknown]
  - Off label use [Unknown]
